FAERS Safety Report 7430971-0 (Version None)
Quarter: 2011Q2

REPORT INFORMATION
  Report Type: 
  Country: None (occurrence: None)
  Receive Date: 20110421
  Receipt Date: 20110413
  Transmission Date: 20111010
  Serious: Yes (Other)
  Sender: FDA-Public Use
  Company Number: US-PFIZER INC-2010019246

PATIENT
  Sex: Female
  Weight: 53 kg

DRUGS (4)
  1. PLACEBO [Suspect]
     Indication: BACK PAIN
     Dosage: 0 MG, 2X/DAY
     Route: 048
     Dates: start: 20091014, end: 20091209
  2. DEPO-PROVERA [Suspect]
     Indication: CONTRACEPTION
     Dosage: UNK
     Route: 030
     Dates: start: 20080101
  3. PF-04383119 [Suspect]
     Indication: BACK PAIN
     Dosage: 20 MG, EVERY 8 WEEKS
     Route: 042
     Dates: start: 20091014, end: 20091209
  4. PF-04383119 [Suspect]
     Dosage: NAPROXEN/PLACEBO, 2X/DAY
     Route: 048
     Dates: start: 20091014

REACTIONS (2)
  - UNINTENDED PREGNANCY [None]
  - DRUG INEFFECTIVE [None]
